FAERS Safety Report 25785156 (Version 1)
Quarter: 2025Q3

REPORT INFORMATION
  Report Type: Spontaneous
  Country: US (occurrence: US)
  Receive Date: 20250910
  Receipt Date: 20250910
  Transmission Date: 20251021
  Serious: No
  Sender: TEVA
  Company Number: US-TEVA-VS-3367937

PATIENT
  Age: 63 Year
  Sex: Female

DRUGS (1)
  1. CLONIDINE TRANSDERMAL SYSTEM [Suspect]
     Active Substance: CLONIDINE
     Indication: Product used for unknown indication
     Route: 062
     Dates: start: 20250823

REACTIONS (2)
  - Product adhesion issue [Unknown]
  - Administration site pain [Not Recovered/Not Resolved]

NARRATIVE: CASE EVENT DATE: 20250824
